FAERS Safety Report 5207217-7 (Version None)
Quarter: 2007Q1

REPORT INFORMATION
  Report Type: 
  Country: None (occurrence: None)
  Receive Date: 20070112
  Receipt Date: 20070110
  Transmission Date: 20070707
  Serious: Yes (Hospitalization)
  Sender: FDA-Public Use
  Company Number: AZC-CH-02/07

PATIENT
  Age: 45 Year
  Sex: Male

DRUGS (1)
  1. AMOXICILLIN + CLAVULANATE POTASSIUM [Suspect]
     Dosage: 1G TWICE PER DAY
     Route: 048
     Dates: start: 20060108, end: 20060112

REACTIONS (13)
  - ANOREXIA [None]
  - ANURIA [None]
  - CHOLESTASIS [None]
  - DIARRHOEA HAEMORRHAGIC [None]
  - HAEMOPTYSIS [None]
  - HALLUCINATION [None]
  - HEADACHE [None]
  - HICCUPS [None]
  - JAUNDICE [None]
  - LIVER FUNCTION TEST ABNORMAL [None]
  - NORMOCHROMIC NORMOCYTIC ANAEMIA [None]
  - RENAL FAILURE ACUTE [None]
  - VOMITING [None]
